FAERS Safety Report 8840332 (Version 4)
Quarter: 2014Q2

REPORT INFORMATION
  Report Type: Spontaneous
  Country: US (occurrence: US)
  Receive Date: 20121015
  Receipt Date: 20130810
  Transmission Date: 20141212
  Serious: Yes (Death, Hospitalization, Other)
  Sender: FDA-Public Use
  Company Number: US-BAXTER-2012BAX019763

PATIENT
  Sex: Female

DRUGS (1)
  1. DIANEAL PD2 [Suspect]
     Indication: PERITONEAL DIALYSIS
     Route: 033
     Dates: start: 20120530, end: 20120810

REACTIONS (8)
  - Cardiopulmonary failure [Fatal]
  - Renal failure [Fatal]
  - Pneumoperitoneum [Recovering/Resolving]
  - Cardiac arrest [Unknown]
  - Gastrointestinal haemorrhage [Unknown]
  - Vomiting [Recovered/Resolved]
  - Peritonitis bacterial [Recovering/Resolving]
  - Device related infection [Recovering/Resolving]
